FAERS Safety Report 4946744-4 (Version None)
Quarter: 2006Q1

REPORT INFORMATION
  Report Type: 
  Country: None (occurrence: None)
  Receive Date: 20060317
  Receipt Date: 20051007
  Transmission Date: 20060701
  Serious: Yes (Death, Hospitalization)
  Sender: FDA-Public Use
  Company Number: US-MERCK-0510USA06363

PATIENT
  Age: 79 Year
  Sex: Female
  Weight: 95 kg

DRUGS (1)
  1. VIOXX [Suspect]
     Indication: PAIN MANAGEMENT
     Route: 048
     Dates: start: 20010131, end: 20020117

REACTIONS (18)
  - ACCELERATED HYPERTENSION [None]
  - ANAEMIA [None]
  - ARTHRALGIA [None]
  - CEREBRAL ARTERY OCCLUSION [None]
  - CEREBROVASCULAR ACCIDENT [None]
  - DEATH [None]
  - DIABETES MELLITUS NON-INSULIN-DEPENDENT [None]
  - DIVERTICULUM [None]
  - FALL [None]
  - GASTRITIS [None]
  - HYPERTENSION [None]
  - HYPOGLYCAEMIA [None]
  - JOINT SWELLING [None]
  - METAPLASIA [None]
  - OBESITY [None]
  - OSTEOARTHRITIS [None]
  - SENILE DEMENTIA [None]
  - VASCULAR DEMENTIA [None]
